FAERS Safety Report 4771906-9 (Version None)
Quarter: 2005Q3

REPORT INFORMATION
  Report Type: 
  Country: None (occurrence: None)
  Receive Date: 20050916
  Receipt Date: 20050623
  Transmission Date: 20060218
  Serious: Yes (Hospitalization)
  Sender: FDA-Public Use
  Company Number: US-GLAXOSMITHKLINE-A0563973A

PATIENT
  Age: 80 Year
  Sex: Female

DRUGS (1)
  1. AVANDIA [Suspect]
     Indication: DRUG USE FOR UNKNOWN INDICATION
     Route: 048

REACTIONS (4)
  - CARDIAC FAILURE CONGESTIVE [None]
  - CARDIAC VALVE DISEASE [None]
  - PULMONARY HYPERTENSION [None]
  - PULMONARY OEDEMA [None]
